FAERS Safety Report 16232973 (Version 1)
Quarter: 2019Q2

REPORT INFORMATION
  Report Type: Spontaneous
  Country: US (occurrence: US)
  Receive Date: 20190424
  Receipt Date: 20190424
  Transmission Date: 20190711
  Serious: No
  Sender: FDA-Public Use
  Company Number: US-PFIZER INC-2019170074

PATIENT
  Age: 62 Year
  Sex: Male
  Weight: 145.15 kg

DRUGS (1)
  1. LYRICA [Suspect]
     Active Substance: PREGABALIN
     Indication: NEUROPATHY PERIPHERAL
     Dosage: 200 MG, 2X/DAY
     Route: 048

REACTIONS (4)
  - Malaise [Unknown]
  - Product dose omission [Unknown]
  - Depressed mood [Unknown]
  - Morbid thoughts [Unknown]
